FAERS Safety Report 19516619 (Version 1)
Quarter: 2021Q3

REPORT INFORMATION
  Report Type: Spontaneous
  Country: US (occurrence: US)
  Receive Date: 20210709
  Receipt Date: 20210709
  Transmission Date: 20211014
  Serious: No
  Sender: FDA-Public Use
  Company Number: US-ASTELLAS-2021US001889

PATIENT
  Age: 66 Year
  Sex: Female

DRUGS (2)
  1. MYRBETRIQ [Interacting]
     Active Substance: MIRABEGRON
     Dosage: 0.5 DF, TWICE DAILY (50 MG?HALF PILL AT NIGHT AND OTHER HALF IN THE NEXT MORNING)
     Route: 065
  2. MYRBETRIQ [Suspect]
     Active Substance: MIRABEGRON
     Indication: URINARY INCONTINENCE
     Dosage: 50 MG, ONCE DAILY (2?3 WEEKS AGO)
     Route: 065

REACTIONS (6)
  - Off label use [Unknown]
  - Poor quality sleep [Unknown]
  - Dizziness [Unknown]
  - Cerebral disorder [Unknown]
  - Wrong technique in product usage process [Unknown]
  - Balance disorder [Unknown]
